FAERS Safety Report 14471626 (Version 2)
Quarter: 2018Q1

REPORT INFORMATION
  Report Type: Spontaneous
  Country: US (occurrence: US)
  Receive Date: 20180131
  Receipt Date: 20180314
  Transmission Date: 20180509
  Serious: Yes (Other)
  Sender: FDA-Public Use
  Company Number: US-GE HEALTHCARE LIFE SCIENCES-2018CSU000390

PATIENT
  Age: 21 Year
  Sex: Female
  Weight: 55 kg

DRUGS (1)
  1. OMNIPAQUE [Suspect]
     Active Substance: IOHEXOL
     Indication: APPENDICITIS
     Dosage: 100 ML, SINGLE
     Route: 042
     Dates: start: 20180123, end: 20180123

REACTIONS (1)
  - Contrast media reaction [Recovered/Resolved]

NARRATIVE: CASE EVENT DATE: 20180123
